FAERS Safety Report 19003063 (Version 1)
Quarter: 2021Q1

REPORT INFORMATION
  Report Type: Spontaneous
  Country: HU (occurrence: HU)
  Receive Date: 20210312
  Receipt Date: 20210312
  Transmission Date: 20210420
  Serious: Yes (Hospitalization, Other)
  Sender: FDA-Public Use
  Company Number: HU-JNJFOC-20210305588

PATIENT
  Age: 45 Year
  Sex: Female

DRUGS (23)
  1. VELETRI [Suspect]
     Active Substance: EPOPROSTENOL
     Dosage: 11NG/KG/MIN
     Route: 042
     Dates: start: 201810
  2. VELETRI [Suspect]
     Active Substance: EPOPROSTENOL
     Dosage: 5 NG/KG/MIN.
     Route: 042
     Dates: start: 201901
  3. VELETRI [Suspect]
     Active Substance: EPOPROSTENOL
     Dosage: RAPID TITRATION OF 10 TO 20 NG/KG/MIN.
     Route: 042
  4. UPTRAVI [Suspect]
     Active Substance: SELEXIPAG
     Route: 048
     Dates: start: 201812
  5. UPTRAVI [Suspect]
     Active Substance: SELEXIPAG
     Route: 048
     Dates: start: 20190415
  6. VELETRI [Suspect]
     Active Substance: EPOPROSTENOL
     Dosage: 2 NG/KG/MIN.
     Route: 042
     Dates: end: 201902
  7. SILDENAFIL. [Concomitant]
     Active Substance: SILDENAFIL
     Dates: start: 201609
  8. HEPARINE [HEPARIN SODIUM] [Concomitant]
     Active Substance: HEPARIN SODIUM
  9. VELETRI [Suspect]
     Active Substance: EPOPROSTENOL
     Dosage: 5 NG/KG/MIN.
     Route: 042
     Dates: start: 201812
  10. UPTRAVI [Suspect]
     Active Substance: SELEXIPAG
     Route: 048
  11. VELETRI [Suspect]
     Active Substance: EPOPROSTENOL
     Indication: PULMONARY ARTERIAL HYPERTENSION
     Dosage: 20 NG/KG/MIN
     Route: 042
     Dates: start: 201607
  12. VELETRI [Suspect]
     Active Substance: EPOPROSTENOL
     Dosage: 12 NG/KG/MIN
     Route: 042
     Dates: start: 201609
  13. UPTRAVI [Suspect]
     Active Substance: SELEXIPAG
     Indication: PULMONARY ARTERIAL HYPERTENSION
     Route: 048
     Dates: start: 201810
  14. UPTRAVI [Suspect]
     Active Substance: SELEXIPAG
     Route: 048
     Dates: start: 201901
  15. UPTRAVI [Suspect]
     Active Substance: SELEXIPAG
     Route: 048
     Dates: start: 201902
  16. SILDENAFIL. [Concomitant]
     Active Substance: SILDENAFIL
     Dosage: 3 X 20 MG
  17. CORTEF [Concomitant]
     Active Substance: HYDROCORTISONE
     Dates: start: 201703
  18. UPTRAVI [Suspect]
     Active Substance: SELEXIPAG
     Route: 048
  19. UPTRAVI [Suspect]
     Active Substance: SELEXIPAG
     Route: 048
  20. UPTRAVI [Suspect]
     Active Substance: SELEXIPAG
     Route: 048
     Dates: start: 202102
  21. UPTRAVI [Suspect]
     Active Substance: SELEXIPAG
     Route: 048
  22. UPTRAVI [Suspect]
     Active Substance: SELEXIPAG
     Route: 048
     Dates: start: 201902
  23. L THYROXINE [Concomitant]
     Active Substance: LEVOTHYROXINE SODIUM
     Dates: start: 201703

REACTIONS (8)
  - Vocal cord paresis [Unknown]
  - N-terminal prohormone brain natriuretic peptide increased [Recovering/Resolving]
  - Device dislocation [Recovered/Resolved]
  - Atelectasis [Unknown]
  - Hypopituitarism [Unknown]
  - Headache [Unknown]
  - Generalised tonic-clonic seizure [Unknown]
  - Nausea [Unknown]

NARRATIVE: CASE EVENT DATE: 201608
